FAERS Safety Report 9026153 (Version 1)
Quarter: 2013Q1

REPORT INFORMATION
  Report Type: Spontaneous
  Country: US (occurrence: None)
  Receive Date: 20130108
  Receipt Date: 20130108
  Transmission Date: 20140127
  Serious: Yes (Hospitalization)
  Sender: FDA-Public Use
  Company Number: 1546279

PATIENT
  Age: 28 Year
  Sex: Male

DRUGS (12)
  1. KETOROLAC TROMETAMOL [Suspect]
     Indication: VIRAL INFECTION
     Route: 042
  2. CLOZAPINE [Suspect]
     Indication: SCHIZOAFFECTIVE DISORDER
  3. CLOZAPINE [Suspect]
     Indication: SCHIZOAFFECTIVE DISORDER
  4. LEVOFLOXACIN [Suspect]
     Indication: URINARY TRACT INFECTION
  5. LITHIUM [Suspect]
     Indication: SCHIZOAFFECTIVE DISORDER
  6. MOXIFLOXACIN [Suspect]
     Indication: SINUSITIS
  7. MOXIFLOXACIN [Suspect]
     Indication: LUNG INFECTION
  8. ACETAMINOPHEN [Concomitant]
  9. DIVALPROEX [Concomitant]
  10. HALOPERIDOL [Concomitant]
  11. PERPHENAZINE [Concomitant]
  12. BENZTROPINE [Concomitant]

REACTIONS (5)
  - Drug interaction [None]
  - Tubulointerstitial nephritis [None]
  - Headache [None]
  - Blood calcium decreased [None]
  - Renal failure acute [None]
